FAERS Safety Report 7502084-0 (Version None)
Quarter: 2011Q2

REPORT INFORMATION
  Report Type: 
  Country: None (occurrence: None)
  Receive Date: 20110525
  Receipt Date: 20110128
  Transmission Date: 20111010
  Serious: No
  Sender: FDA-Public Use
  Company Number: A0911831A

PATIENT
  Age: 14 Year

DRUGS (4)
  1. SINGULAIR [Concomitant]
     Dosage: 5MG AT NIGHT
  2. ALBUTEROL SULFATE AUTOHALER [Concomitant]
     Dosage: 3ML AS REQUIRED
  3. VENTOLIN [Suspect]
     Dosage: 90MCG AS REQUIRED
  4. UNKNOWN MEDICATION [Concomitant]

REACTIONS (2)
  - TREMOR [None]
  - DRUG INEFFECTIVE [None]
